FAERS Safety Report 17066745 (Version 1)
Quarter: 2019Q4

REPORT INFORMATION
  Report Type: Spontaneous
  Country: GR (occurrence: GR)
  Receive Date: 20191122
  Receipt Date: 20191122
  Transmission Date: 20200122
  Serious: Yes (Other)
  Sender: FDA-Public Use
  Company Number: GR-MYLANLABS-2019M1113340

PATIENT
  Age: 38 Year
  Sex: Male

DRUGS (1)
  1. ZOLEDRONIC ACID [Suspect]
     Active Substance: ZOLEDRONIC ACID
     Indication: PRODUCT USED FOR UNKNOWN INDICATION
     Dosage: 4 MILLIGRAM, MONTHLY
     Route: 065

REACTIONS (8)
  - Rash vesicular [Unknown]
  - Mesenteric phlebosclerosis [Unknown]
  - Enteritis [Unknown]
  - Systemic mastocytosis [Unknown]
  - Diarrhoea [Unknown]
  - Large intestine polyp [Unknown]
  - Rash papular [Unknown]
  - Headache [Unknown]

NARRATIVE: CASE EVENT DATE: 201704
